FAERS Safety Report 7827155-0 (Version None)
Quarter: 2011Q4

REPORT INFORMATION
  Report Type: 
  Country: None (occurrence: None)
  Receive Date: 20111018
  Receipt Date: 20110930
  Transmission Date: 20120403
  Serious: Yes (Death)
  Sender: FDA-Public Use
  Company Number: FK201102069

PATIENT
  Sex: Male

DRUGS (11)
  1. IMMUNE GLOBULIN NOS [Suspect]
     Indication: SEPSIS
  2. METRONIDAZOLE [Suspect]
     Indication: PRODUCT USED FOR UNKNOWN INDICATION
  3. PENICILLIN G, CRYSTALLINE-POTASSIUM [Suspect]
     Indication: ABSCESS LIMB
     Dosage: INTRAVENOUS (NOT OTHERWISE SPECIFIED)
     Route: 042
  4. OXACILLIN [Suspect]
     Indication: ABSCESS LIMB
  5. TEICOPLANIN (TEICOPLANIN) [Suspect]
     Indication: SEPSIS
  6. GENTAMICIN [Suspect]
     Indication: ABSCESS LIMB
     Dosage: INTRAVENOUS (NOT OTHERWISE SPECIFIED)
     Route: 042
  7. AMIKACIN [Suspect]
     Indication: PRODUCT USED FOR UNKNOWN INDICATION
  8. CLINDAMYCIN [Suspect]
     Indication: PRODUCT USED FOR UNKNOWN INDICATION
  9. VANCOMYCIN HYCHLORIDE [Suspect]
  10. FLUCONAZOLE [Suspect]
     Indication: SEPSIS
  11. CIPROFLOXACIN [Suspect]
     Indication: PRODUCT USED FOR UNKNOWN INDICATION

REACTIONS (6)
  - NEUTROPHIL COUNT INCREASED [None]
  - ULCERATIVE KERATITIS [None]
  - NECROTISING COLITIS [None]
  - MESENTERIC ARTERY THROMBOSIS [None]
  - SEPTIC SHOCK [None]
  - TOXIC EPIDERMAL NECROLYSIS [None]
